FAERS Safety Report 4532453-2 (Version None)
Quarter: 2004Q4

REPORT INFORMATION
  Report Type: 
  Country: None (occurrence: None)
  Receive Date: 20041220
  Receipt Date: 20040617
  Transmission Date: 20050328
  Serious: Yes (Hospitalization, Disabling)
  Sender: FDA-Public Use
  Company Number: US-MERCK-0406USA01754

PATIENT
  Age: 51 Year
  Sex: Female
  Weight: 73 kg

DRUGS (10)
  1. VIOXX [Suspect]
     Indication: ARTHRALGIA
     Route: 048
     Dates: start: 20010401, end: 20020617
  2. COMBIPATCH [Concomitant]
     Indication: MENOPAUSE
     Route: 065
     Dates: start: 19990101, end: 20020617
  3. MINOCYCLINE [Concomitant]
     Route: 065
  4. ASPIRIN [Concomitant]
     Route: 065
     Dates: start: 19940101
  5. IBUPROFEN [Concomitant]
     Route: 065
     Dates: start: 19940101
  6. ADVIL [Concomitant]
     Route: 065
  7. MOTRIN [Concomitant]
     Route: 065
  8. TYLENOL (CAPLET) [Concomitant]
     Route: 065
  9. DIAZEPAM [Concomitant]
     Route: 065
     Dates: start: 20010426
  10. DIAZEPAM [Concomitant]
     Route: 065
     Dates: start: 20010518

REACTIONS (5)
  - BURSITIS [None]
  - CORONARY ARTERY DISEASE [None]
  - HYPERTENSION [None]
  - MYOCARDIAL INFARCTION [None]
  - TENDONITIS [None]
